FAERS Safety Report 9834287 (Version 1)
Quarter: 2014Q1

REPORT INFORMATION
  Report Type: Report from Study
  Country: FR (occurrence: FR)
  Receive Date: 20140122
  Receipt Date: 20140122
  Transmission Date: 20141002
  Serious: Yes (Hospitalization)
  Sender: FDA-Public Use
  Company Number: FR-ABBVIE-14P-056-1191378-00

PATIENT
  Age: 3 Month
  Sex: Female

DRUGS (1)
  1. PALIVIZUMAB [Suspect]
     Indication: ANTIVIRAL PROPHYLAXIS
     Dates: start: 20131107

REACTIONS (1)
  - Cough [Recovering/Resolving]
